FAERS Safety Report 9606197 (Version 1)
Quarter: 2013Q4

REPORT INFORMATION
  Report Type: Spontaneous
  Country: US (occurrence: US)
  Receive Date: 20131008
  Receipt Date: 20131008
  Transmission Date: 20140711
  Serious: No
  Sender: FDA-Public Use
  Company Number: US-AMGEN-USASP2013045239

PATIENT
  Age: 71 Year
  Sex: Female

DRUGS (3)
  1. PROLIA [Suspect]
     Indication: OSTEOPOROSIS POSTMENOPAUSAL
     Dosage: UNK UNK, Q6MO
     Dates: start: 20121213
  2. DEXILANT [Concomitant]
     Dosage: UNK
  3. CALCIUM [Concomitant]
     Dosage: UNK

REACTIONS (2)
  - Osteoarthritis [Unknown]
  - Pain in extremity [Unknown]
